FAERS Safety Report 6631147-7 (Version None)
Quarter: 2010Q1

REPORT INFORMATION
  Report Type: 
  Country: None (occurrence: None)
  Receive Date: 20100309
  Receipt Date: 20100224
  Transmission Date: 20100710
  Serious: Yes (Hospitalization)
  Sender: FDA-Public Use
  Company Number: 231955J10USA

PATIENT
  Age: 23 Year
  Sex: Female
  Weight: 57 kg

DRUGS (3)
  1. REBIF [Suspect]
     Indication: MULTIPLE SCLEROSIS
     Dosage: 44 MCG, 3 IN 1 WEEKS, SUBCUTANEOUS
     Route: 058
     Dates: start: 20090601
  2. IBUPROFEN [Concomitant]
  3. TOPAMAX [Concomitant]

REACTIONS (1)
  - PANCREATITIS [None]
